FAERS Safety Report 5094136-2 (Version None)
Quarter: 2006Q3

REPORT INFORMATION
  Report Type: 
  Country: None (occurrence: None)
  Receive Date: 20060831
  Receipt Date: 20060823
  Transmission Date: 20061208
  Serious: Yes (Disabling)
  Sender: FDA-Public Use
  Company Number: GB-ALLERGAN-0604278US

PATIENT
  Age: 56 Year
  Sex: Female

DRUGS (1)
  1. DYSPORT [Suspect]
     Indication: DRUG USE FOR UNKNOWN INDICATION
     Dosage: 160 UNITS, SINGLE
     Route: 030
     Dates: start: 20041020, end: 20041020

REACTIONS (3)
  - FACIAL PALSY [None]
  - INFLUENZA LIKE ILLNESS [None]
  - INJECTION SITE PAIN [None]
